FAERS Safety Report 9437580 (Version 2)
Quarter: 2013Q3

REPORT INFORMATION
  Report Type: Spontaneous
  Country: ES (occurrence: ES)
  Receive Date: 20130802
  Receipt Date: 20130809
  Transmission Date: 20140515
  Serious: Yes (Other)
  Sender: FDA-Public Use
  Company Number: ES-ROCHE-1255506

PATIENT
  Age: 49 Year
  Sex: Male
  Weight: 83 kg

DRUGS (2)
  1. PEGASYS [Suspect]
     Indication: CHRONIC HEPATITIS C
     Dosage: FORM OF ADMINISTRATION: PRE-FILLED PEN
     Route: 058
     Dates: start: 20120928
  2. REBETOL [Suspect]
     Indication: CHRONIC HEPATITIS C
     Route: 048
     Dates: start: 20120928, end: 20130620

REACTIONS (2)
  - Rash [Recovered/Resolved]
  - Eosinophilia [Recovered/Resolved]
